FAERS Safety Report 6885312-4 (Version None)
Quarter: 2010Q3

REPORT INFORMATION
  Report Type: 
  Country: None (occurrence: None)
  Receive Date: 20100729
  Receipt Date: 20100729
  Transmission Date: 20110219
  Serious: Yes (Other)
  Sender: FDA-Public Use
  Company Number: None

PATIENT
  Age: 64 Year
  Sex: Male
  Weight: 66.2252 kg

DRUGS (1)
  1. FINASTERIDE [Suspect]
     Indication: DYSURIA
     Dosage: 5 MG 1-ADAY
     Dates: start: 20100303, end: 20100630

REACTIONS (2)
  - ERECTILE DYSFUNCTION [None]
  - LOSS OF LIBIDO [None]
